FAERS Safety Report 6186703-X (Version None)
Quarter: 2009Q2

REPORT INFORMATION
  Report Type: 
  Country: None (occurrence: None)
  Receive Date: 20090508
  Receipt Date: 20090508
  Transmission Date: 20091009
  Serious: Yes (Hospitalization)
  Sender: FDA-Public Use
  Company Number: None

PATIENT
  Age: 80 Year
  Sex: Female
  Weight: 97 kg

DRUGS (2)
  1. SIMVASTATIN [Suspect]
     Indication: HYPERLIPIDAEMIA
     Dosage: 80MG DAILY PO
     Route: 048
     Dates: start: 20081201, end: 20090429
  2. GEMFIBROZIL [Suspect]
     Indication: HYPERTRIGLYCERIDAEMIA
     Dosage: 600MG TWO TIMES A DAY PO
     Route: 048
     Dates: start: 20081201, end: 20090429

REACTIONS (1)
  - RHABDOMYOLYSIS [None]
